FAERS Safety Report 17887773 (Version 1)
Quarter: 2020Q2

REPORT INFORMATION
  Report Type: Report from Study
  Country: None (occurrence: PA)
  Receive Date: 20200611
  Receipt Date: 20200611
  Transmission Date: 20200714
  Serious: Yes (Other)
  Sender: FDA-Public Use
  Company Number: PA-ABBVIE-19K-125-2855498-00

PATIENT
  Age: 30 Year
  Sex: Female

DRUGS (1)
  1. HUMIRA [Suspect]
     Active Substance: ADALIMUMAB
     Indication: PSORIASIS
     Route: 058
     Dates: start: 20170105, end: 20180728

REACTIONS (6)
  - Ischaemic stroke [Recovered/Resolved]
  - Pre-eclampsia [Recovered/Resolved]
  - Hypertension [Recovered/Resolved]
  - Live birth [Unknown]
  - Nephropathy [Recovered/Resolved]
  - Maternal exposure during pregnancy [Unknown]

NARRATIVE: CASE EVENT DATE: 20200227
